FAERS Safety Report 6611015-7 (Version None)
Quarter: 2010Q1

REPORT INFORMATION
  Report Type: 
  Country: None (occurrence: None)
  Receive Date: 20100222
  Receipt Date: 20100215
  Transmission Date: 20100710
  Serious: Yes (Hospitalization)
  Sender: FDA-Public Use
  Company Number: 2009EU004859

PATIENT
  Age: 58 Year
  Sex: Male
  Weight: 82 kg

DRUGS (10)
  1. VESICARE [Suspect]
     Indication: BLADDER OBSTRUCTION
     Dosage: 5 MG, UID/QD, ORAL
     Route: 048
     Dates: start: 20091016
  2. ATENOLOL [Concomitant]
  3. LANSOPRAZOLE [Concomitant]
  4. SIMVASTATIN [Concomitant]
  5. IPRATROPIUM BROMIDE W/SALBUTAMOL (IPRATROPIUM BROMIDE, SALBUTAMOL) [Concomitant]
  6. ASPIRIN [Concomitant]
  7. GLYCERYL TRINITRATE (GLYCERYL TRINITRATE) [Concomitant]
  8. SALBUTAMOL (SALBUTAMOL) [Concomitant]
  9. IPRATROPIUM BROMIDE [Concomitant]
  10. ACETAMINOPHEN [Concomitant]

REACTIONS (1)
  - ATRIAL FIBRILLATION [None]
